FAERS Safety Report 6285536-3 (Version None)
Quarter: 2009Q3

REPORT INFORMATION
  Report Type: 
  Country: None (occurrence: None)
  Receive Date: 20090716
  Receipt Date: 20090319
  Transmission Date: 20100115
  Serious: Yes (Other)
  Sender: FDA-Public Use
  Company Number: 2009BI008393

PATIENT
  Age: 49 Year
  Sex: Female
  Weight: 64.4108 kg

DRUGS (3)
  1. AVONEX [Suspect]
     Indication: MULTIPLE SCLEROSIS
     Dosage: 30 UG;QW;IM
     Route: 030
     Dates: start: 20080101
  2. TEGRETOL [Concomitant]
  3. PREV MEDS [Concomitant]

REACTIONS (4)
  - CONVULSION [None]
  - DEVICE INEFFECTIVE [None]
  - DIARRHOEA [None]
  - INFLUENZA LIKE ILLNESS [None]
